FAERS Safety Report 8808628 (Version 1)
Quarter: 2012Q4

REPORT INFORMATION
  Report Type: Spontaneous
  Country: US (occurrence: None)
  Receive Date: 20120920
  Receipt Date: 20120920
  Transmission Date: 20130627
  Serious: Yes (Other)
  Sender: FDA-Public Use
  Company Number: None

PATIENT
  Age: 52 Year
  Sex: Female
  Weight: 83.92 kg

DRUGS (1)
  1. CYKLOKAPRON [Suspect]
     Indication: BLEEDING MENSTRUAL HEAVY
     Dosage: 2 tablets, every 6 hours, po
     Route: 048
     Dates: start: 20120913, end: 20120919

REACTIONS (3)
  - Headache [None]
  - Feeling abnormal [None]
  - Delusion [None]
